FAERS Safety Report 10257540 (Version 1)
Quarter: 2014Q2

REPORT INFORMATION
  Report Type: Spontaneous
  Country: US (occurrence: None)
  Receive Date: 20140623
  Receipt Date: 20140623
  Transmission Date: 20141212
  Serious: Yes (Other)
  Sender: FDA-Public Use
  Company Number: None

PATIENT
  Age: 58 Year
  Sex: 0

DRUGS (1)
  1. VOLTAREN [Suspect]
     Indication: VEIN DISORDER
     Dosage: YES TWICE DAILY APPLIED TO A SURFACE, USUALLY THE SKIN

REACTIONS (1)
  - Accidental exposure to product [None]
